FAERS Safety Report 24877238 (Version 1)
Quarter: 2025Q1

REPORT INFORMATION
  Report Type: Spontaneous
  Country: US (occurrence: US)
  Receive Date: 20250123
  Receipt Date: 20250123
  Transmission Date: 20250409
  Serious: No
  Sender: BIONPHARMA INC.
  Company Number: US-Bion-014680

PATIENT

DRUGS (1)
  1. CEVIMELINE HYDROCHLORIDE [Suspect]
     Active Substance: CEVIMELINE HYDROCHLORIDE
     Indication: Dry mouth

REACTIONS (1)
  - Poor quality product administered [Unknown]
